FAERS Safety Report 24184720 (Version 1)
Quarter: 2024Q3

REPORT INFORMATION
  Report Type: Spontaneous
  Country: US (occurrence: None)
  Receive Date: 20240807
  Receipt Date: 20240807
  Transmission Date: 20241016
  Serious: Yes (Hospitalization, Disabling)
  Sender: Public
  Company Number: None

PATIENT
  Age: 42 Year
  Sex: Female
  Weight: 67.5 kg

DRUGS (5)
  1. EMGALITY [Suspect]
     Active Substance: GALCANEZUMAB-GNLM
     Indication: Migraine
     Dosage: OTHER QUANTITY : 1 INJECTION(S)?OTHER FREQUENCY : ONCE A MONTH?OTHER ROUTE : INJECTION IN TO UPPER T
     Route: 050
     Dates: start: 20240705, end: 20240705
  2. Methimizole [Concomitant]
  3. zophran [Concomitant]
  4. Women^s-one-a-day [Concomitant]
  5. ADVIL [Concomitant]
     Active Substance: IBUPROFEN\IBUPROFEN SODIUM

REACTIONS (2)
  - Palpitations [None]
  - Anxiety [None]

NARRATIVE: CASE EVENT DATE: 20240705
